FAERS Safety Report 5814706-0 (Version None)
Quarter: 2008Q3

REPORT INFORMATION
  Report Type: 
  Country: None (occurrence: None)
  Receive Date: 20080718
  Receipt Date: 20080425
  Transmission Date: 20090109
  Serious: No
  Sender: FDA-Public Use
  Company Number: US-KINGPHARMUSA00001-K200800500

PATIENT

DRUGS (2)
  1. LEVOXYL [Suspect]
     Indication: THYROID DISORDER
     Dosage: 50 MCG, QD
     Route: 048
     Dates: start: 20080101, end: 20080402
  2. LEVOXYL [Suspect]
     Dosage: 150 MCG, QD
     Route: 048
     Dates: start: 20080403

REACTIONS (6)
  - CHEST PAIN [None]
  - DIARRHOEA [None]
  - HEADACHE [None]
  - HYPOAESTHESIA ORAL [None]
  - PRURITUS GENERALISED [None]
  - SOMNOLENCE [None]
